FAERS Safety Report 5089357-9 (Version None)
Quarter: 2006Q3

REPORT INFORMATION
  Report Type: 
  Country: None (occurrence: None)
  Receive Date: 20060825
  Receipt Date: 20060817
  Transmission Date: 20061208
  Serious: Yes (Hospitalization)
  Sender: FDA-Public Use
  Company Number: DE-ABBOTT-06P-062-0341234-00

PATIENT
  Sex: Female
  Weight: 77 kg

DRUGS (20)
  1. ZEMPLAR [Suspect]
     Indication: HYPERPARATHYROIDISM SECONDARY
     Route: 042
     Dates: start: 20060626
  2. ACETYLSALICYLIC ACID SRT [Concomitant]
     Indication: ARRHYTHMIA
  3. PANTOPRAZOLE SODIUM [Concomitant]
     Indication: GASTRITIS
  4. SIVMAHEXAL [Concomitant]
     Indication: DRUG USE FOR UNKNOWN INDICATION
  5. VITARENAL [Concomitant]
     Indication: DRUG USE FOR UNKNOWN INDICATION
  6. SEVELAMER HYDROCHLORIDE [Concomitant]
     Indication: DRUG USE FOR UNKNOWN INDICATION
  7. INSULIN AXTRAPH 30/70 NL [Concomitant]
     Indication: DIABETES MELLITUS
  8. SAROTEN TABS [Concomitant]
     Indication: DRUG USE FOR UNKNOWN INDICATION
  9. MIMPARA [Concomitant]
     Indication: HYPERPARATHYROIDISM SECONDARY
  10. DIOVAN [Concomitant]
     Indication: HYPERTENSION
  11. BISOPROLOL FUMARATE [Concomitant]
     Indication: TACHYARRHYTHMIA
  12. BICSNORM [Concomitant]
     Indication: ACIDOSIS
  13. SODIUM POLYSTYRENE SULFONATE [Concomitant]
     Indication: HYPOKALAEMIA
  14. CALCIUM ACETATE [Concomitant]
     Indication: DRUG USE FOR UNKNOWN INDICATION
  15. DIPYRONE TAB [Concomitant]
     Indication: PAIN
  16. MCP AL 10 [Concomitant]
     Indication: DIABETIC GASTROPATHY
  17. CYANOCOBALAMIN [Concomitant]
     Indication: DIALYSIS
     Route: 050
  18. VITAMIN C ROTEXMEDICA [Concomitant]
     Indication: DIALYSIS
  19. NEORECORMON [Concomitant]
     Indication: DIALYSIS
  20. FERRIC SODIUM GLUCONATE COMPLEX [Concomitant]
     Indication: DIALYSIS

REACTIONS (2)
  - FALL [None]
  - FRACTURE [None]
